FAERS Safety Report 6692467-3 (Version None)
Quarter: 2010Q2

REPORT INFORMATION
  Report Type: 
  Country: None (occurrence: None)
  Receive Date: 20100422
  Receipt Date: 20100419
  Transmission Date: 20101027
  Serious: Yes (Other)
  Sender: FDA-Public Use
  Company Number: A0849697A

PATIENT
  Age: 58 Year
  Sex: Female

DRUGS (2)
  1. TREXIMET [Suspect]
     Indication: MIGRAINE
     Dosage: 1TAB AS REQUIRED
     Route: 048
     Dates: start: 20080101
  2. NEXIUM [Concomitant]

REACTIONS (4)
  - EXPIRED DRUG ADMINISTERED [None]
  - HALLUCINATION [None]
  - PRODUCT QUALITY ISSUE [None]
  - SOMNOLENCE [None]
